FAERS Safety Report 7019967-0 (Version None)
Quarter: 2010Q3

REPORT INFORMATION
  Report Type: 
  Country: None (occurrence: None)
  Receive Date: 20100927
  Receipt Date: 20100907
  Transmission Date: 20110219
  Serious: Yes (Hospitalization)
  Sender: FDA-Public Use
  Company Number: JPI-P-012127

PATIENT
  Age: 57 Year
  Sex: Female
  Weight: 100.6985 kg

DRUGS (2)
  1. XYREM [Suspect]
     Indication: FIBROMYALGIA
     Dosage: 3 GM (1.5 GM, 2 IN 1 D), ORAL
     Route: 048
     Dates: start: 20100902, end: 20100907
  2. UNSPECIFIED MEDICATIONS [Concomitant]

REACTIONS (1)
  - HAEMATOCHEZIA [None]
